FAERS Safety Report 8491256-7 (Version None)
Quarter: 2012Q3

REPORT INFORMATION
  Report Type: 
  Country: None (occurrence: None)
  Receive Date: 20120706
  Receipt Date: 20120628
  Transmission Date: 20120928
  Serious: Yes (Hospitalization)
  Sender: FDA-Public Use
  Company Number: US-ASTELLAS-2012US004504

PATIENT
  Sex: Female

DRUGS (2)
  1. ERLOTINIB HYDROCHLORIDE [Suspect]
     Indication: TRACHEAL CANCER
     Dosage: 100 MG, UID/QD
     Route: 048
     Dates: start: 20120425, end: 20120425
  2. ERLOTINIB HYDROCHLORIDE [Suspect]
     Dosage: 25 MG, UID/QD
     Route: 048
     Dates: start: 20120424

REACTIONS (5)
  - TOXICITY TO VARIOUS AGENTS [None]
  - PLATELET COUNT DECREASED [None]
  - HAEMATOCHEZIA [None]
  - HAEMATOMA [None]
  - OFF LABEL USE [None]
